FAERS Safety Report 15950244 (Version 20)
Quarter: 2025Q1

REPORT INFORMATION
  Report Type: Report from Study
  Country: CA (occurrence: CA)
  Receive Date: 20190212
  Receipt Date: 20250120
  Transmission Date: 20250409
  Serious: Yes (Hospitalization, Other)
  Sender: NOVARTIS
  Company Number: PHHY2018CA036004

PATIENT
  Age: 44 Year
  Sex: Male

DRUGS (11)
  1. SANDOSTATIN LAR DEPOT [Suspect]
     Active Substance: OCTREOTIDE ACETATE
     Indication: Neuroendocrine tumour
     Dosage: 20 MG, Q4W
     Route: 030
     Dates: start: 20170525
  2. SANDOSTATIN LAR DEPOT [Suspect]
     Active Substance: OCTREOTIDE ACETATE
     Dosage: 30 MG, Q4W
     Route: 030
  3. SANDOSTATIN LAR DEPOT [Suspect]
     Active Substance: OCTREOTIDE ACETATE
     Dosage: 40 MG, Q4W
     Route: 030
  4. SANDOSTATIN LAR DEPOT [Suspect]
     Active Substance: OCTREOTIDE ACETATE
     Dosage: 20 MG, Q4W
     Route: 030
     Dates: start: 20180327
  5. SANDOSTATIN LAR DEPOT [Suspect]
     Active Substance: OCTREOTIDE ACETATE
     Dosage: 30 MG, QMO
     Route: 030
  6. SANDOSTATIN LAR DEPOT [Suspect]
     Active Substance: OCTREOTIDE ACETATE
     Route: 030
     Dates: start: 202403
  7. SANDOSTATIN LAR DEPOT [Suspect]
     Active Substance: OCTREOTIDE ACETATE
     Route: 065
     Dates: start: 20241010
  8. SANDOSTATIN [Suspect]
     Active Substance: OCTREOTIDE ACETATE
     Indication: Neuroendocrine tumour
     Dosage: 100 UG, BID
     Route: 058
     Dates: start: 20170419, end: 2017
  9. SANDOSTATIN [Suspect]
     Active Substance: OCTREOTIDE ACETATE
  10. SANDOSTATIN [Suspect]
     Active Substance: OCTREOTIDE ACETATE
  11. METFORMIN [Concomitant]
     Active Substance: METFORMIN HYDROCHLORIDE
     Indication: Diabetes mellitus
     Dosage: 500 MG, TID
     Route: 048
     Dates: start: 2017

REACTIONS (22)
  - Spinal cord neoplasm [Unknown]
  - Back pain [Unknown]
  - Gastrointestinal pain [Unknown]
  - Pneumonia [Recovered/Resolved]
  - Sepsis [Recovered/Resolved]
  - Cough [Unknown]
  - Urinary incontinence [Unknown]
  - Nerve compression [Unknown]
  - Abdominal pain [Unknown]
  - Spinal cord infection [Unknown]
  - Thyroid cancer [Unknown]
  - Dysphonia [Unknown]
  - Malaise [Unknown]
  - Second primary malignancy [Unknown]
  - Swelling [Unknown]
  - Pyrexia [Unknown]
  - Blood pressure increased [Unknown]
  - Mobility decreased [Unknown]
  - Chills [Unknown]
  - Pain [Unknown]
  - Blood calcium decreased [Unknown]
  - Incorrect dose administered [Unknown]

NARRATIVE: CASE EVENT DATE: 20180227
